FAERS Safety Report 21902756 (Version 1)
Quarter: 2023Q1

REPORT INFORMATION
  Report Type: Spontaneous
  Country: US (occurrence: None)
  Receive Date: 20230123
  Receipt Date: 20230123
  Transmission Date: 20230418
  Serious: Yes (Hospitalization)
  Sender: FDA-Public Use
  Company Number: None

PATIENT
  Sex: Male

DRUGS (2)
  1. GAMMAGARD S/D [Suspect]
     Active Substance: HUMAN IMMUNOGLOBULIN G
     Indication: Chronic inflammatory demyelinating polyradiculoneuropathy
     Dosage: OTHER STRENGTH : 10GM;?OTHER QUANTITY : 70GM;?FREQUENCY : MONTHLY;?
     Route: 042
     Dates: start: 20220609
  2. GAMMAGARD S/D [Suspect]
     Active Substance: HUMAN IMMUNOGLOBULIN G
     Indication: Chronic inflammatory demyelinating polyradiculoneuropathy
     Dosage: OTHER STRENGTH : 5GM;?OTHER QUANTITY : 5GM;?FREQUENCY : MONTHLY;?
     Route: 042
     Dates: start: 20220609

REACTIONS (2)
  - Bronchitis [None]
  - Weight decreased [None]
